FAERS Safety Report 13396989 (Version 1)
Quarter: 2017Q2

REPORT INFORMATION
  Report Type: Spontaneous
  Country: US (occurrence: US)
  Receive Date: 20170403
  Receipt Date: 20170403
  Transmission Date: 20170830
  Serious: Yes (Other)
  Sender: FDA-Public Use
  Company Number: US-JUBILANT CADISTA PHARMACEUTICALS-2017JUB00092

PATIENT
  Age: 78 Year
  Sex: Female
  Weight: 74.83 kg

DRUGS (4)
  1. ORENITRAM [Suspect]
     Active Substance: TREPROSTINIL
     Indication: PULMONARY ARTERIAL HYPERTENSION
     Dosage: 3 MG, 1X/DAY
     Route: 048
     Dates: start: 20160303
  2. PREDNISONE. [Suspect]
     Active Substance: PREDNISONE
  3. ORENITRAM [Suspect]
     Active Substance: TREPROSTINIL
     Dosage: 3 MG, 1X/DAY
     Dates: start: 20160303
  4. OPSUMIT [Concomitant]
     Active Substance: MACITENTAN

REACTIONS (3)
  - Dyspnoea exertional [Unknown]
  - Fatigue [Unknown]
  - Headache [Recovering/Resolving]

NARRATIVE: CASE EVENT DATE: 201702
